FAERS Safety Report 18968578 (Version 24)
Quarter: 2024Q2

REPORT INFORMATION
  Report Type: Report from Study
  Country: DE (occurrence: DE)
  Receive Date: 20210304
  Receipt Date: 20240415
  Transmission Date: 20240715
  Serious: Yes (Death, Hospitalization, Disabling, Other)
  Sender: FDA-Public Use
  Company Number: DE-PFM-2020-22214

PATIENT
  Age: 68 Year
  Sex: Male
  Weight: 108 kg

DRUGS (9)
  1. BRAFTOVI [Suspect]
     Active Substance: ENCORAFENIB
     Indication: Malignant melanoma
     Dosage: 450 MG, QD (1/DAY)
     Route: 048
     Dates: start: 20201002, end: 20201119
  2. BRAFTOVI [Suspect]
     Active Substance: ENCORAFENIB
     Dosage: 450 MG, QD (1/DAY)
     Route: 048
     Dates: start: 20201124, end: 20220331
  3. BRAFTOVI [Suspect]
     Active Substance: ENCORAFENIB
     Dosage: 450 MG, QD (1/DAY)
     Route: 048
     Dates: end: 20220401
  4. MEKTOVI [Suspect]
     Active Substance: BINIMETINIB
     Indication: Malignant melanoma
     Dosage: 45 MG/2 X PER DAY
     Route: 048
     Dates: start: 20201002, end: 20201119
  5. MEKTOVI [Suspect]
     Active Substance: BINIMETINIB
     Dosage: 45 MG, BID (2/DAY)
     Route: 048
     Dates: start: 20201124, end: 20220331
  6. MEKTOVI [Suspect]
     Active Substance: BINIMETINIB
     Dosage: 45 MG, BID (2/DAY)
     Route: 048
     Dates: end: 20220401
  7. CIPROFLOXACIN [Suspect]
     Active Substance: CIPROFLOXACIN
     Indication: Urinary tract infection
     Dosage: UNK
     Route: 065
     Dates: start: 20201119
  8. PIPERACILLIN AND TAZOBACTAM [Concomitant]
     Active Substance: PIPERACILLIN SODIUM\TAZOBACTAM SODIUM
     Indication: Urinary tract infection
     Dosage: UNK
     Route: 042
     Dates: start: 20201217, end: 20201219
  9. GRANU FINK PROSTA FORTE [Concomitant]
     Dosage: UNK
     Route: 065
     Dates: start: 20201016

REACTIONS (17)
  - Death [Fatal]
  - Urinary tract infection [Recovered/Resolved]
  - Urinary tract infection [Recovered/Resolved]
  - Pruritus [Recovering/Resolving]
  - Acute kidney injury [Unknown]
  - Type 2 diabetes mellitus [Unknown]
  - Second primary malignancy [Unknown]
  - B-cell lymphoma [Unknown]
  - Transient ischaemic attack [Recovered/Resolved]
  - Hypersensitivity [Not Recovered/Not Resolved]
  - Cataract [Unknown]
  - Alopecia [Unknown]
  - Muscle spasms [Recovered/Resolved]
  - Rash maculo-papular [Unknown]
  - Hypersensitivity [Unknown]
  - Intertrigo [Unknown]
  - Malaise [Unknown]

NARRATIVE: CASE EVENT DATE: 20201008
